FAERS Safety Report 10220005 (Version 1)
Quarter: 2014Q2

REPORT INFORMATION
  Report Type: Report from Study
  Country: NZ (occurrence: NZ)
  Receive Date: 20140605
  Receipt Date: 20140605
  Transmission Date: 20141212
  Serious: Yes (Death, Other)
  Sender: FDA-Public Use
  Company Number: PHHY2014NZ068797

PATIENT
  Age: 73 Year
  Sex: Male

DRUGS (1)
  1. CLOZARIL [Suspect]
     Indication: MENTAL DISORDER
     Dosage: UNK UKN, UNK
     Dates: start: 20010511

REACTIONS (2)
  - Death [Fatal]
  - Cognitive disorder [Unknown]
